FAERS Safety Report 19739966 (Version 2)
Quarter: 2021Q3

REPORT INFORMATION
  Report Type: Report from Study
  Country: US (occurrence: US)
  Receive Date: 20210823
  Receipt Date: 20210830
  Transmission Date: 20211014
  Serious: No
  Sender: FDA-Public Use
  Company Number: US-B.I. PHARMACEUTICALS,INC./RIDGEFIELD-2021-BI-120318

PATIENT
  Age: 55 Year
  Sex: Male

DRUGS (1)
  1. OFEV [Suspect]
     Active Substance: NINTEDANIB
     Indication: IDIOPATHIC PULMONARY FIBROSIS
     Dosage: OFEV 150MG ORALLY TWICE DAILY
     Route: 048
     Dates: start: 20210727

REACTIONS (6)
  - Anal incontinence [Unknown]
  - Diarrhoea [Recovering/Resolving]
  - Nausea [Unknown]
  - Abdominal discomfort [Unknown]
  - Flatulence [Unknown]
  - Hypophagia [Unknown]

NARRATIVE: CASE EVENT DATE: 20210727
